FAERS Safety Report 11492134 (Version 2)
Quarter: 2015Q3

REPORT INFORMATION
  Report Type: Report from Study
  Country: US (occurrence: US)
  Receive Date: 20150910
  Receipt Date: 20150923
  Transmission Date: 20151125
  Serious: Yes (Hospitalization)
  Sender: FDA-Public Use
  Company Number: US-PURDUE PHARMA-USA-2015-0126068

PATIENT
  Sex: Female

DRUGS (1)
  1. BTDS PATCH [Suspect]
     Active Substance: BUPRENORPHINE
     Indication: PRODUCT USED FOR UNKNOWN INDICATION
     Route: 062

REACTIONS (7)
  - Malaise [Unknown]
  - Pain in extremity [Unknown]
  - Asthenia [Unknown]
  - Dyspnoea [Unknown]
  - Feeling jittery [Unknown]
  - Tremor [Unknown]
  - Chest discomfort [Unknown]
